FAERS Safety Report 6610320-8 (Version None)
Quarter: 2010Q1

REPORT INFORMATION
  Report Type: 
  Country: None (occurrence: None)
  Receive Date: 20100302
  Receipt Date: 20100225
  Transmission Date: 20100710
  Serious: Yes (Life-Threatening, Hospitalization, Other)
  Sender: FDA-Public Use
  Company Number: GXKR2010DE00649

PATIENT
  Age: 28 Year
  Sex: Female
  Weight: 30 kg

DRUGS (7)
  1. FLUOXETIN 1A PHARMA (NGX) [Suspect]
     Dosage: 10 MG, QD
     Route: 048
     Dates: start: 20080701, end: 20091009
  2. FLUOXETIN 1A PHARMA (NGX) [Suspect]
     Dosage: 20 MG, QD
     Route: 048
     Dates: start: 20080701, end: 20091009
  3. ZYPREXA [Suspect]
     Dosage: 1 DF, QD
     Route: 048
     Dates: start: 20090601, end: 20091010
  4. ATOSIL [Suspect]
     Dosage: 25 MG, BID
     Route: 048
     Dates: start: 20080701, end: 20091009
  5. SEROQUEL [Concomitant]
     Dosage: 1 TABLET DAILY
     Route: 048
     Dates: start: 20090101
  6. ARTELAC [Concomitant]
     Indication: DRY EYE
     Dosage: 2 GTT, TID
     Route: 047
     Dates: start: 20030101, end: 20091006
  7. DULCOLAX [Concomitant]
     Dosage: SINGLE DOSE
     Route: 048

REACTIONS (1)
  - LONG QT SYNDROME [None]
